FAERS Safety Report 17191766 (Version 1)
Quarter: 2019Q4

REPORT INFORMATION
  Report Type: Spontaneous
  Country: GB (occurrence: GB)
  Receive Date: 20191223
  Receipt Date: 20191223
  Transmission Date: 20200122
  Serious: Yes (Other)
  Sender: FDA-Public Use
  Company Number: GB-PFIZER INC-2019545351

PATIENT
  Age: 4 Year
  Sex: Male
  Weight: 17.5 kg

DRUGS (3)
  1. MERCAPTOPURINE. [Concomitant]
     Active Substance: MERCAPTOPURINE
     Dosage: UNK
  2. METHOTREXATE SODIUM. [Suspect]
     Active Substance: METHOTREXATE SODIUM
     Indication: ACUTE LYMPHOCYTIC LEUKAEMIA
     Dosage: 12 MG, UNK
     Route: 037
     Dates: start: 20180813
  3. COTRIMOXAZOLE [Concomitant]
     Active Substance: SULFAMETHOXAZOLE\TRIMETHOPRIM
     Dosage: UNK

REACTIONS (9)
  - Hypotonia [Unknown]
  - Dyskinesia [Recovered/Resolved]
  - Fall [Unknown]
  - Unresponsive to stimuli [Recovered/Resolved]
  - Altered state of consciousness [Unknown]
  - Seizure [Recovered/Resolved]
  - Eye movement disorder [Unknown]
  - Excessive eye blinking [Unknown]
  - Blepharospasm [Unknown]

NARRATIVE: CASE EVENT DATE: 20190429
